FAERS Safety Report 18243909 (Version 2)
Quarter: 2020Q4

REPORT INFORMATION
  Report Type: Spontaneous
  Country: DE (occurrence: DE)
  Receive Date: 20200908
  Receipt Date: 20201009
  Transmission Date: 20210113
  Serious: Yes (Hospitalization)
  Sender: FDA-Public Use
  Company Number: NVSC2020DE242568

PATIENT
  Sex: Female

DRUGS (1)
  1. LIDOCAINE. [Suspect]
     Active Substance: LIDOCAINE
     Indication: ANAESTHESIA
     Dosage: SEVERAL INJECTIONS(10 INJECTIONS OF LIDOCAINE IN THE FOLLOWING 6 WEEKS)
     Route: 065
     Dates: start: 201807

REACTIONS (13)
  - Panic disorder [Unknown]
  - Swollen tongue [Unknown]
  - Laryngeal oedema [Unknown]
  - Pharyngeal swelling [Unknown]
  - Toothache [Unknown]
  - Feeling abnormal [Unknown]
  - Vertigo [Unknown]
  - Swelling of eyelid [Unknown]
  - Acne [Unknown]
  - Taste disorder [Unknown]
  - Mental status changes [Unknown]
  - Tremor [Unknown]
  - Nervousness [Unknown]
